FAERS Safety Report 18227001 (Version 2)
Quarter: 2020Q3

REPORT INFORMATION
  Report Type: Spontaneous
  Country: US (occurrence: US)
  Receive Date: 20200903
  Receipt Date: 20200915
  Transmission Date: 20201103
  Serious: Yes (Other)
  Sender: FDA-Public Use
  Company Number: US-PFIZER INC-2020340377

PATIENT
  Age: 67 Year
  Sex: Female
  Weight: 47.4 kg

DRUGS (1)
  1. NOREPINEPHRINE BITARTRATE. [Suspect]
     Active Substance: NOREPINEPHRINE BITARTRATE
     Dosage: UNK (TITRATED UP TO 0.3)

REACTIONS (3)
  - Condition aggravated [Recovering/Resolving]
  - Atrial fibrillation [Recovering/Resolving]
  - Drug ineffective [Recovering/Resolving]
